FAERS Safety Report 6755792-3 (Version None)
Quarter: 2010Q2

REPORT INFORMATION
  Report Type: 
  Country: None (occurrence: None)
  Receive Date: 20100604
  Receipt Date: 20100527
  Transmission Date: 20101027
  Serious: Yes (Hospitalization)
  Sender: FDA-Public Use
  Company Number: US-ELI_LILLY_AND_COMPANY-US201005007754

PATIENT
  Sex: Male

DRUGS (4)
  1. HUMALOG MIX 75/25 [Suspect]
     Indication: TYPE 2 DIABETES MELLITUS
     Dosage: 30 U, EACH MORNING
  2. HUMALOG MIX 75/25 [Suspect]
     Dosage: 25 U, EACH EVENING
  3. HUMALOG MIX 75/25 [Suspect]
     Dosage: 30 U, EACH MORNING
  4. HUMALOG MIX 75/25 [Suspect]
     Dosage: 25 U, EACH EVENING

REACTIONS (6)
  - ABDOMINAL HERNIA [None]
  - APHONIA [None]
  - COUGH [None]
  - DRUG DISPENSING ERROR [None]
  - DYSPHONIA [None]
  - LARYNGEAL INJURY [None]
